FAERS Safety Report 6207396-9 (Version None)
Quarter: 2009Q2

REPORT INFORMATION
  Report Type: 
  Country: None (occurrence: None)
  Receive Date: 20090528
  Receipt Date: 20090518
  Transmission Date: 20091009
  Serious: Yes (Other)
  Sender: FDA-Public Use
  Company Number: CZ-PFIZER INC-2009215929

PATIENT

DRUGS (1)
  1. PROVERA [Suspect]
     Route: 050
     Dates: start: 20090408, end: 20090417

REACTIONS (1)
  - INTRA-UTERINE DEATH [None]
